FAERS Safety Report 9521887 (Version 3)
Quarter: 2013Q4

REPORT INFORMATION
  Report Type: Spontaneous
  Country: JP (occurrence: JP)
  Receive Date: 20130913
  Receipt Date: 20131025
  Transmission Date: 20140711
  Serious: Yes (Life-Threatening, Hospitalization, Other)
  Sender: FDA-Public Use
  Company Number: JP-ROCHE-1272721

PATIENT
  Age: 69 Year
  Sex: Female
  Weight: 60 kg

DRUGS (9)
  1. ACTEMRA [Suspect]
     Indication: RHEUMATOID ARTHRITIS
     Route: 041
     Dates: start: 20090309, end: 20130322
  2. NAUZELIN [Concomitant]
     Route: 048
  3. BIOFERMIN [Concomitant]
     Route: 048
  4. CALONAL [Concomitant]
     Route: 048
  5. TAKEPRON [Concomitant]
     Route: 048
  6. EDIROL [Concomitant]
     Indication: OSTEOPOROSIS
     Route: 048
  7. URSO [Concomitant]
     Route: 048
  8. MOBIC [Concomitant]
     Route: 048
  9. BONOTEO [Concomitant]
     Indication: OSTEOPOROSIS
     Route: 048

REACTIONS (4)
  - Vulval cellulitis [Recovering/Resolving]
  - Gastrointestinal necrosis [Recovering/Resolving]
  - Disseminated intravascular coagulation [Recovered/Resolved]
  - Cellulitis [Recovered/Resolved]
